FAERS Safety Report 7954801-3 (Version None)
Quarter: 2011Q4

REPORT INFORMATION
  Report Type: 
  Country: None (occurrence: None)
  Receive Date: 20111202
  Receipt Date: 20111130
  Transmission Date: 20120403
  Serious: Yes (Other)
  Sender: FDA-Public Use
  Company Number: JP-ABBOTT-11P-087-0874708-00

PATIENT
  Sex: Female
  Weight: 47 kg

DRUGS (15)
  1. ERYTHROCIN LACTOBIONATE [Suspect]
     Indication: MEDIASTINAL ABSCESS
  2. AMIKACIN SULFATE [Suspect]
     Indication: LUNG ABSCESS
  3. AMIKACIN SULFATE [Suspect]
     Indication: SEPSIS
  4. AMIKACIN SULFATE [Suspect]
     Indication: MEDIASTINAL ABSCESS
  5. IMIPENEM AND CILASTATIN SODIUM [Suspect]
     Indication: LUNG ABSCESS
     Route: 042
     Dates: start: 20101118, end: 20101124
  6. IMIPENEM AND CILASTATIN SODIUM [Suspect]
     Indication: SEPSIS
  7. CARBIMAZOL [Concomitant]
     Indication: MEDIASTINAL ABSCESS
  8. ERYTHROCIN LACTOBIONATE [Suspect]
     Indication: RETROPERITONEAL ABSCESS
     Route: 042
     Dates: start: 20101102, end: 20101109
  9. ERYTHROCIN LACTOBIONATE [Suspect]
     Indication: LUNG ABSCESS
     Dates: start: 20101118, end: 20101124
  10. IMIPENEM AND CILASTATIN SODIUM [Suspect]
     Indication: RETROPERITONEAL ABSCESS
     Route: 042
     Dates: start: 20101006, end: 20101109
  11. CARBIMAZOL [Concomitant]
     Indication: SEPSIS
  12. ERYTHROCIN LACTOBIONATE [Suspect]
     Indication: SEPSIS
  13. AMIKACIN SULFATE [Suspect]
     Indication: RETROPERITONEAL ABSCESS
     Route: 042
     Dates: start: 20101102, end: 20101109
  14. IMIPENEM AND CILASTATIN SODIUM [Suspect]
     Indication: MEDIASTINAL ABSCESS
  15. CARBIMAZOL [Concomitant]
     Indication: RETROPERITONEAL ABSCESS

REACTIONS (1)
  - DEAFNESS [None]
